FAERS Safety Report 9245116 (Version 1)
Quarter: 2013Q1

REPORT INFORMATION
  Report Type: Spontaneous
  Country: US (occurrence: None)
  Receive Date: 20121130
  Receipt Date: 20121130
  Transmission Date: 20140127
  Serious: Yes (Hospitalization)
  Sender: FDA-Public Use
  Company Number: PHEH2012US001330

PATIENT
  Sex: Male

DRUGS (2)
  1. TEKTURNA (ALIKSIREN) [Suspect]
     Indication: HYPERTENSION
     Dosage: UNK, UNK, UNK
  2. STEROIDS NOS [Concomitant]

REACTIONS (1)
  - Blood pressure increased [None]
